FAERS Safety Report 8115108-7 (Version None)
Quarter: 2012Q1

REPORT INFORMATION
  Report Type: 
  Country: None (occurrence: None)
  Receive Date: 20120201
  Receipt Date: 20120127
  Transmission Date: 20120608
  Serious: Yes (Other)
  Sender: FDA-Public Use
  Company Number: ACO_29148_2012

PATIENT
  Sex: Male

DRUGS (3)
  1. AVONEX [Concomitant]
  2. METHOTREXATE [Concomitant]
  3. AMPYRA [Suspect]
     Indication: PRODUCT USED FOR UNKNOWN INDICATION
     Dates: start: 20100601

REACTIONS (4)
  - INAPPROPRIATE SCHEDULE OF DRUG ADMINISTRATION [None]
  - HEPATIC FAILURE [None]
  - BLOOD TEST ABNORMAL [None]
  - NAUSEA [None]
